FAERS Safety Report 12578124 (Version 4)
Quarter: 2016Q4

REPORT INFORMATION
  Report Type: Spontaneous
  Country: JP (occurrence: JP)
  Receive Date: 20160721
  Receipt Date: 20161209
  Transmission Date: 20170207
  Serious: Yes (Life-Threatening, Other)
  Sender: FDA-Public Use
  Company Number: JP-ASTRAZENECA-2016SE77697

PATIENT
  Age: 24719 Day
  Sex: Male

DRUGS (15)
  1. FORXIGA [Suspect]
     Active Substance: DAPAGLIFLOZIN
     Indication: TYPE 2 DIABETES MELLITUS
     Route: 048
     Dates: start: 20151109, end: 20151115
  2. ARTIST [Concomitant]
     Active Substance: CARVEDILOL
     Indication: CARDIAC FAILURE CHRONIC
     Route: 048
  3. CARDENALIN OD [Concomitant]
     Indication: CARDIAC FAILURE CHRONIC
     Route: 048
  4. ISOCORONAL R [Concomitant]
     Active Substance: ISOSORBIDE DINITRATE
     Indication: CARDIAC FAILURE CHRONIC
     Route: 048
  5. CRESTOR [Concomitant]
     Active Substance: ROSUVASTATIN CALCIUM
     Route: 048
  6. URIADEC [Concomitant]
     Active Substance: TOPIROXOSTAT
     Route: 048
     Dates: start: 20151109
  7. VALSARTAN. [Concomitant]
     Active Substance: VALSARTAN
     Route: 048
  8. METHYCOBAL [Concomitant]
     Active Substance: METHYLCOBALAMIN
     Route: 048
  9. BASEN OD [Concomitant]
     Active Substance: VOGLIBOSE
     Indication: TYPE 2 DIABETES MELLITUS
     Route: 048
  10. DIART [Concomitant]
     Active Substance: AZOSEMIDE
     Dosage: 60.0MG UNKNOWN
     Route: 048
  11. AMARYL [Concomitant]
     Active Substance: GLIMEPIRIDE
     Indication: TYPE 2 DIABETES MELLITUS
     Route: 048
  12. PREDONINE [Concomitant]
     Active Substance: PREDNISOLONE\PREDNISOLONE ACETATE\PREDNISOLONE SODIUM SUCCINATE
     Indication: SERONEGATIVE ARTHRITIS
     Route: 048
     Dates: start: 20130820
  13. CALONAL [Concomitant]
     Active Substance: ACETAMINOPHEN
     Indication: CARDIAC FAILURE CHRONIC
     Route: 048
  14. EQUA [Concomitant]
     Active Substance: VILDAGLIPTIN
     Indication: TYPE 2 DIABETES MELLITUS
     Route: 048
  15. LANSOPRAZOLE OD [Concomitant]
     Active Substance: LANSOPRAZOLE
     Indication: PROPHYLAXIS
     Route: 048

REACTIONS (5)
  - Pneumonia [Recovered/Resolved]
  - Blood pressure increased [Unknown]
  - Cardio-respiratory arrest [Recovered/Resolved]
  - Urine output decreased [Unknown]
  - Sleep apnoea syndrome [Unknown]

NARRATIVE: CASE EVENT DATE: 20151115
